FAERS Safety Report 23524639 (Version 1)
Quarter: 2024Q1

REPORT INFORMATION
  Report Type: Report from Study
  Country: US (occurrence: US)
  Receive Date: 20240215
  Receipt Date: 20240215
  Transmission Date: 20240410
  Serious: Yes (Hospitalization)
  Sender: FDA-Public Use
  Company Number: US-ABBVIE-5633758

PATIENT
  Age: 59 Year
  Sex: Female

DRUGS (1)
  1. SKYRIZI [Suspect]
     Active Substance: RISANKIZUMAB-RZAA
     Indication: Psoriasis
     Route: 058
     Dates: start: 20230824

REACTIONS (5)
  - Dizziness [Unknown]
  - Feeling abnormal [Unknown]
  - Dysarthria [Unknown]
  - Migraine [Unknown]
  - COVID-19 [Unknown]

NARRATIVE: CASE EVENT DATE: 20240101
